FAERS Safety Report 22336958 (Version 2)
Quarter: 2023Q2

REPORT INFORMATION
  Report Type: Spontaneous
  Country: US (occurrence: US)
  Receive Date: 20230518
  Receipt Date: 20230614
  Transmission Date: 20230722
  Serious: Yes (Other)
  Sender: FDA-Public Use
  Company Number: US-BRISTOL-MYERS SQUIBB COMPANY-2023-066298

PATIENT
  Age: 75 Year
  Sex: Female

DRUGS (1)
  1. POMALYST [Suspect]
     Active Substance: POMALIDOMIDE
     Indication: Plasma cell myeloma
     Dosage: TAKE 1 CAPSULE BY MOUTH EVERY DAY 21 DAYS ON AND 7 DAYS OFF
     Route: 048
     Dates: start: 20220628

REACTIONS (3)
  - Fatigue [Recovering/Resolving]
  - Myalgia [Recovering/Resolving]
  - Bronchitis [Unknown]
